FAERS Safety Report 7541322-5 (Version None)
Quarter: 2011Q2

REPORT INFORMATION
  Report Type: 
  Country: None (occurrence: None)
  Receive Date: 20110612
  Receipt Date: 20110526
  Transmission Date: 20111010
  Serious: No
  Sender: FDA-Public Use
  Company Number: US-ROXANE LABORATORIES, INC.-2011-RO-00491RO

PATIENT
  Sex: Male

DRUGS (5)
  1. ZOLPIDEM [Suspect]
     Indication: SLEEP DISORDER
     Dosage: 10 MG
     Route: 048
  2. PRAVASTATIN [Concomitant]
     Dosage: 40 MG
  3. OMEPRAZOLE [Concomitant]
  4. FLOMAX [Concomitant]
  5. TESTOSTERONE [Concomitant]

REACTIONS (1)
  - DRUG INEFFECTIVE [None]
